FAERS Safety Report 19849468 (Version 1)
Quarter: 2021Q3

REPORT INFORMATION
  Report Type: Spontaneous
  Country: DE (occurrence: DE)
  Receive Date: 20210917
  Receipt Date: 20210917
  Transmission Date: 20211014
  Serious: Yes (Death, Congenital Anomaly, Other)
  Sender: FDA-Public Use
  Company Number: DE-MYLANLABS-2021M1063325

PATIENT
  Sex: Male

DRUGS (1)
  1. OLMESARTAN MEDOXOMIL. [Suspect]
     Active Substance: OLMESARTAN MEDOXOMIL
     Indication: PRODUCT USED FOR UNKNOWN INDICATION
     Dosage: 40 MILLIGRAM, QD
     Route: 064

REACTIONS (10)
  - Vena cava thrombosis [Unknown]
  - Foetal exposure during pregnancy [Recovered/Resolved]
  - Coagulation disorder neonatal [Unknown]
  - Kidney malformation [Unknown]
  - Pulmonary hypoplasia [Unknown]
  - Microcephaly [Unknown]
  - Death neonatal [Fatal]
  - Neonatal respiratory distress syndrome [Unknown]
  - Joint contracture [Unknown]
  - Cerebral haemorrhage neonatal [Unknown]
